FAERS Safety Report 4583992-X (Version None)
Quarter: 2005Q1

REPORT INFORMATION
  Report Type: 
  Country: None (occurrence: None)
  Receive Date: 20050125
  Receipt Date: 20041104
  Transmission Date: 20050727
  Serious: No
  Sender: FDA-Public Use
  Company Number: USA041183247

PATIENT
  Age: 48 Year
  Sex: Female
  Weight: 75 kg

DRUGS (3)
  1. FORTEO [Suspect]
     Indication: OSTEOPOROSIS
     Dosage: 20 UG/1 DAY
     Dates: start: 20040921
  2. HYDROCHLOROTHIAZIDE [Concomitant]
  3. DARVOCET-N 100 [Concomitant]

REACTIONS (4)
  - INJECTION SITE HAEMORRHAGE [None]
  - NAUSEA [None]
  - ONYCHORRHEXIS [None]
  - STOMACH DISCOMFORT [None]
